FAERS Safety Report 9543880 (Version 3)
Quarter: 2013Q4

REPORT INFORMATION
  Report Type: Spontaneous
  Country: JP (occurrence: JP)
  Receive Date: 20130923
  Receipt Date: 20131105
  Transmission Date: 20140711
  Serious: Yes (Other)
  Sender: FDA-Public Use
  Company Number: JP-GLAXOSMITHKLINE-B0924258A

PATIENT
  Age: 32 Year
  Sex: Female
  Weight: 65 kg

DRUGS (2)
  1. TYKERB [Suspect]
     Indication: BREAST CANCER
     Dosage: 1250MG PER DAY
     Route: 048
     Dates: end: 20130528
  2. XELODA [Suspect]
     Indication: BREAST CANCER
     Dosage: 900MG TWICE PER DAY
     Route: 048
     Dates: end: 20130528

REACTIONS (2)
  - Vitreous haemorrhage [Recovering/Resolving]
  - Retinal haemorrhage [Recovering/Resolving]
